FAERS Safety Report 25684965 (Version 1)
Quarter: 2025Q3

REPORT INFORMATION
  Report Type: Spontaneous
  Country: US (occurrence: None)
  Receive Date: 20250814
  Receipt Date: 20250814
  Transmission Date: 20251021
  Serious: Yes (Hospitalization)
  Sender: FDA-CTU
  Company Number: None

PATIENT
  Sex: Female

DRUGS (12)
  1. LENALIDOMIDE [Suspect]
     Active Substance: LENALIDOMIDE
     Indication: Plasma cell myeloma
     Route: 048
     Dates: start: 20250322
  2. WELCHOL [Suspect]
     Active Substance: COLESEVELAM HYDROCHLORIDE
  3. ACYCLOVIR [Concomitant]
     Active Substance: ACYCLOVIR
  4. CALCIUM CARBONATE [Concomitant]
     Active Substance: CALCIUM CARBONATE
  5. VITAMINS [Concomitant]
     Active Substance: VITAMINS
  6. DARZALEX [Concomitant]
     Active Substance: DARATUMUMAB
  7. FLUTICASONE [Concomitant]
     Active Substance: FLUTICASONE
  8. LOMOTIL [Concomitant]
     Active Substance: ATROPINE SULFATE\DIPHENOXYLATE HYDROCHLORIDE
  9. NIFEDIPINE [Concomitant]
     Active Substance: NIFEDIPINE
  10. OMEPRAZOLE [Concomitant]
     Active Substance: OMEPRAZOLE
  11. PROCHLORPER [Concomitant]
  12. TYLENOL [Concomitant]
     Active Substance: ACETAMINOPHEN

REACTIONS (4)
  - Chest discomfort [None]
  - Acute kidney injury [None]
  - Diarrhoea [None]
  - Electrolyte imbalance [None]
